FAERS Safety Report 9846701 (Version 2)
Quarter: 2014Q3

REPORT INFORMATION
  Report Type: Spontaneous
  Country: US (occurrence: US)
  Receive Date: 20140127
  Receipt Date: 20140808
  Transmission Date: 20150326
  Serious: Yes (Hospitalization, Other)
  Sender: FDA-Public Use
  Company Number: US-009507513-1401USA010240

PATIENT
  Sex: Female

DRUGS (1)
  1. NUVARING [Suspect]
     Active Substance: ETHINYL ESTRADIOL\ETONOGESTREL
     Indication: CONTRACEPTION
     Dosage: UNK
     Route: 067
     Dates: start: 2004, end: 20060429

REACTIONS (7)
  - Tonsillitis [Unknown]
  - Appendicitis [Unknown]
  - Appendicectomy [Unknown]
  - Vaginal haemorrhage [Unknown]
  - Upper limb fracture [Unknown]
  - Mesenteric vein thrombosis [Unknown]
  - Haemarthrosis [Unknown]

NARRATIVE: CASE EVENT DATE: 20060310
